FAERS Safety Report 5314154-6 (Version None)
Quarter: 2007Q2

REPORT INFORMATION
  Report Type: 
  Country: None (occurrence: None)
  Receive Date: 20070426
  Receipt Date: 20070416
  Transmission Date: 20071010
  Serious: Yes (Hospitalization, Other)
  Sender: FDA-Public Use
  Company Number: 16313

PATIENT
  Age: 61 Year
  Sex: Female

DRUGS (10)
  1. HALOPERIDOL [Suspect]
     Indication: BIPOLAR I DISORDER
     Dosage: 6 MG DAILY
  2. HALOPERIDOL [Suspect]
     Indication: BIPOLAR I DISORDER
     Dosage: 3 MG DAILY IV
     Route: 042
  3. LEVOMEPROMAZINE [Suspect]
     Indication: BIPOLAR I DISORDER
     Dosage: 100 MG DAILY
  4. BIPERIDEN HYDROCHLORIDE TAB [Suspect]
     Indication: CATATONIA
     Dosage: 5 MG DAILY IM
     Route: 030
  5. VALPROATE SODIUM [Concomitant]
  6. CLOMIPRAMINE HCL [Concomitant]
  7. ATROPINE SULFATE [Concomitant]
  8. THIOPENTAL SODIUM [Concomitant]
  9. SUCCINYLCHOLINE CHLORIDE [Concomitant]
  10. LITHIUM CARBONATE [Concomitant]

REACTIONS (9)
  - ANXIETY [None]
  - CATATONIA [None]
  - IMMOBILE [None]
  - JOINT CONTRACTURE [None]
  - MAJOR DEPRESSION [None]
  - MUSCLE ATROPHY [None]
  - MUTISM [None]
  - PARKINSONISM [None]
  - PSYCHOMOTOR RETARDATION [None]
